FAERS Safety Report 15844330 (Version 1)
Quarter: 2019Q1

REPORT INFORMATION
  Report Type: Spontaneous
  Country: US (occurrence: US)
  Receive Date: 20190118
  Receipt Date: 20190118
  Transmission Date: 20190417
  Serious: Yes (Other)
  Sender: FDA-Public Use
  Company Number: US-GILEAD-2019-0385192

PATIENT
  Age: 52 Year
  Sex: Male

DRUGS (3)
  1. TRUVADA [Suspect]
     Active Substance: EMTRICITABINE\TENOFOVIR DISOPROXIL FUMARATE
     Indication: HIV INFECTION
     Dosage: UNK
     Route: 065
  2. NORVIR [Concomitant]
     Active Substance: RITONAVIR
  3. CRIXIVAN [Concomitant]
     Active Substance: INDINAVIR SULFATE

REACTIONS (5)
  - Drug ineffective [Recovered/Resolved]
  - Viral load increased [Recovered/Resolved]
  - T-lymphocyte count abnormal [Recovered/Resolved]
  - Product dispensing error [Unknown]
  - Product physical issue [Unknown]
